FAERS Safety Report 4782458-1 (Version None)
Quarter: 2005Q3

REPORT INFORMATION
  Report Type: 
  Country: None (occurrence: None)
  Receive Date: 20050929
  Receipt Date: 20041115
  Transmission Date: 20060218
  Serious: No
  Sender: FDA-Public Use
  Company Number: 389516

PATIENT
  Age: 78 Year
  Sex: Female

DRUGS (4)
  1. COREG [Suspect]
     Dosage: 25MG TWICE PER DAY
     Route: 048
  2. PREMARIN [Concomitant]
  3. THYROID TAB [Concomitant]
  4. BENACORT [Concomitant]

REACTIONS (2)
  - ALOPECIA [None]
  - HAIR TEXTURE ABNORMAL [None]
